FAERS Safety Report 8739568 (Version 2)
Quarter: 2012Q4

REPORT INFORMATION
  Report Type: Report from Study
  Country: JP (occurrence: JP)
  Receive Date: 20120823
  Receipt Date: 20121123
  Transmission Date: 20130627
  Serious: Yes (Other)
  Sender: FDA-Public Use
  Company Number: JP-ROCHE-1105042

PATIENT
  Age: 33 Year
  Sex: Female

DRUGS (31)
  1. TOCILIZUMAB [Suspect]
     Indication: RHEUMATOID ARTHRITIS
     Route: 042
     Dates: start: 20080902, end: 20080929
  2. TOCILIZUMAB [Suspect]
     Route: 042
     Dates: start: 20081021, end: 20090818
  3. TOCILIZUMAB [Suspect]
     Route: 042
     Dates: start: 20090915, end: 20100205
  4. TOCILIZUMAB [Suspect]
     Route: 042
     Dates: start: 20100402
  5. CANDESARTAN CILEXETIL [Suspect]
     Indication: HYPERTENSION
     Dosage: Dosage is uncertain.
     Route: 048
     Dates: end: 20100301
  6. NEOISCOTIN [Concomitant]
     Indication: ANTIBIOTIC PROPHYLAXIS
     Dosage: The moon and tree
     Route: 048
  7. PREDNISOLONE [Concomitant]
     Indication: RHEUMATOID ARTHRITIS
     Route: 048
     Dates: end: 20081208
  8. PREDNISOLONE [Concomitant]
     Route: 064
     Dates: start: 20081209, end: 20090105
  9. PREDNISOLONE [Concomitant]
     Route: 064
     Dates: start: 20090106, end: 20090202
  10. PREDNISOLONE [Concomitant]
     Route: 064
     Dates: start: 20090203
  11. PYRIDOXAL PHOSPHATE [Concomitant]
     Indication: PROPHYLAXIS
     Dosage: Drug reported as : Pyridoxal calcium phosphate
     Route: 048
  12. TAKEPRON [Concomitant]
     Indication: PROPHYLAXIS
     Route: 048
  13. PRAVASTATIN SODIUM [Concomitant]
     Indication: HYPERLIPIDAEMIA
     Route: 048
  14. LASIX [Concomitant]
     Indication: HYPERTENSION
     Route: 048
  15. FERROMIA [Concomitant]
     Indication: IRON DEFICIENCY ANAEMIA
     Route: 048
     Dates: start: 20081209
  16. ACTONEL [Concomitant]
     Indication: PROPHYLAXIS
     Route: 048
     Dates: start: 20080928
  17. ACTONEL [Concomitant]
     Route: 064
     Dates: start: 20080917, end: 20080923
  18. CALFINA [Concomitant]
     Indication: PROPHYLAXIS
     Route: 048
     Dates: start: 20090106
  19. LIPITOR [Concomitant]
     Indication: HYPERLIPIDAEMIA
     Dosage: Dosage is uncertain.
     Route: 048
     Dates: end: 20100301
  20. AZULFIDINE-EN [Concomitant]
     Indication: RHEUMATOID ARTHRITIS
     Route: 048
     Dates: end: 20080610
  21. AZULFIDINE-EN [Concomitant]
     Route: 048
     Dates: start: 20080701, end: 20090903
  22. CLINORIL [Concomitant]
     Indication: RHEUMATOID ARTHRITIS
     Route: 048
     Dates: end: 20081208
  23. NU-LOTAN [Concomitant]
     Indication: HYPERTENSION
     Route: 048
     Dates: end: 20080925
  24. FERROUS FUMARATE [Concomitant]
     Indication: IRON DEFICIENCY ANAEMIA
     Dosage: Drug reported as : FERRUM
     Route: 048
     Dates: end: 20081208
  25. FERROMIA [Concomitant]
     Indication: IRON DEFICIENCY ANAEMIA
     Route: 048
     Dates: start: 20081209
  26. TOYOFAROL [Concomitant]
     Indication: PROPHYLAXIS
     Route: 048
     Dates: end: 20090105
  27. BIOFERMIN R [Concomitant]
     Indication: IRRITABLE BOWEL SYNDROME
     Route: 048
     Dates: end: 20080915
  28. EPOETIN ALFA [Concomitant]
     Indication: NEPHROGENIC ANAEMIA
     Route: 058
     Dates: end: 20090106
  29. FESIN [Concomitant]
     Indication: IRON DEFICIENCY ANAEMIA
     Route: 042
     Dates: start: 20081209, end: 20090106
  30. LIPITOR [Concomitant]
     Indication: HYPERLIPIDAEMIA
     Route: 048
     Dates: end: 20100301
  31. LOPEMIN [Concomitant]
     Indication: IRRITABLE BOWEL SYNDROME
     Route: 048
     Dates: end: 20080915

REACTIONS (2)
  - Uterine dilation and evacuation [Unknown]
  - Exposure during pregnancy [Unknown]
